FAERS Safety Report 4972204-0 (Version None)
Quarter: 2006Q2

REPORT INFORMATION
  Report Type: 
  Country: None (occurrence: None)
  Receive Date: 20060413
  Receipt Date: 20060323
  Transmission Date: 20061013
  Serious: Yes (Other)
  Sender: FDA-Public Use
  Company Number: RU-GLAXOSMITHKLINE-B0418528A

PATIENT
  Age: 12 Year
  Sex: Male
  Weight: 40 kg

DRUGS (2)
  1. LAMICTAL [Suspect]
     Dosage: 75MG PER DAY
     Route: 048
  2. FINLEPSIN [Concomitant]
     Route: 048

REACTIONS (1)
  - ELECTROENCEPHALOGRAM ABNORMAL [None]
